FAERS Safety Report 4444506-8 (Version None)
Quarter: 2004Q3

REPORT INFORMATION
  Report Type: 
  Country: None (occurrence: None)
  Receive Date: 20040902
  Receipt Date: 20040813
  Transmission Date: 20050211
  Serious: Yes (Death, Life-Threatening, Hospitalization, Other)
  Sender: FDA-Public Use
  Company Number: A-US2004-06897

PATIENT
  Age: 77 Year
  Sex: Female

DRUGS (7)
  1. TRACLEER [Suspect]
     Indication: PULMONARY HYPERTENSION
     Dosage: 62.5 + 125 MG, BID, ORAL
     Route: 048
     Dates: start: 20031216, end: 20040612
  2. ZYRTEC [Concomitant]
  3. SINGULAIR [Concomitant]
  4. TORSEMIDE (TORASEMIDE) [Concomitant]
  5. DIGOXIN [Concomitant]
  6. MEGACE [Concomitant]
  7. AMBIEN [Concomitant]

REACTIONS (4)
  - DISEASE PROGRESSION [None]
  - HEPATOTOXICITY [None]
  - PULMONARY HYPERTENSION [None]
  - VENTRICULAR FAILURE [None]
